FAERS Safety Report 8835754 (Version 3)
Quarter: 2012Q4

REPORT INFORMATION
  Report Type: 
  Country: LB (occurrence: LB)
  Receive Date: 20121011
  Receipt Date: 20121212
  Transmission Date: 20130627
  Serious: Yes (Hospitalization)
  Sender: FDA-Public Use
  Company Number: PHHY2012LB088038

PATIENT
  Age: 34 Year
  Sex: Male

DRUGS (1)
  1. GLIVEC [Suspect]
     Indication: CHRONIC MYELOID LEUKAEMIA
     Dosage: 400 mg, per day
     Route: 048
     Dates: start: 2009

REACTIONS (2)
  - Renal colic [Recovered/Resolved]
  - Gastrooesophageal reflux disease [Not Recovered/Not Resolved]
